FAERS Safety Report 16636078 (Version 1)
Quarter: 2019Q3

REPORT INFORMATION
  Report Type: Spontaneous
  Country: US (occurrence: US)
  Receive Date: 20190726
  Receipt Date: 20190726
  Transmission Date: 20191004
  Serious: No
  Sender: FDA-Public Use
  Company Number: US-PFIZER INC-2019321543

PATIENT
  Age: 87 Year
  Sex: Female

DRUGS (1)
  1. CELECOXIB. [Suspect]
     Active Substance: CELECOXIB
     Dosage: 1 DF, UNK (1 PILL BEFORE SLEEP)

REACTIONS (2)
  - Back pain [Unknown]
  - Pain in extremity [Unknown]
